FAERS Safety Report 10025953 (Version 2)
Quarter: 2014Q2

REPORT INFORMATION
  Report Type: Spontaneous
  Country: CH (occurrence: None)
  Receive Date: 20140314
  Receipt Date: 20140416
  Transmission Date: 20141212
  Serious: Yes (Other)
  Sender: FDA-Public Use
  Company Number: 7274575

PATIENT
  Age: 37 Year
  Sex: Female

DRUGS (2)
  1. EUTHYROX [Suspect]
     Indication: HYPOTHYROIDISM
     Dates: start: 20130104
  2. ATARAX /00058401/ [Suspect]
     Indication: PRURITUS
     Dates: start: 20121220, end: 20130204

REACTIONS (2)
  - Abortion spontaneous [None]
  - Maternal exposure during pregnancy [None]
